FAERS Safety Report 9950495 (Version 1)
Quarter: 2014Q1

REPORT INFORMATION
  Report Type: Report from Study
  Country: US (occurrence: US)
  Receive Date: 20140304
  Receipt Date: 20140304
  Transmission Date: 20141002
  Serious: No
  Sender: FDA-Public Use
  Company Number: US-ABBVIE-13P-163-1073892-00

PATIENT
  Age: 44 Year
  Sex: Male

DRUGS (4)
  1. HUMIRA [Suspect]
     Indication: CROHN^S DISEASE
  2. HUMIRA [Suspect]
  3. OXYCODONE [Concomitant]
     Indication: PAIN
  4. ADVAIR [Concomitant]
     Indication: ASTHMA
     Dosage: INHALER

REACTIONS (2)
  - Diarrhoea [Not Recovered/Not Resolved]
  - Rash [Not Recovered/Not Resolved]
